FAERS Safety Report 15397276 (Version 1)
Quarter: 2018Q3

REPORT INFORMATION
  Report Type: Spontaneous
  Country: CO (occurrence: CO)
  Receive Date: 20180918
  Receipt Date: 20180918
  Transmission Date: 20181010
  Serious: Yes (Hospitalization, Other)
  Sender: FDA-Public Use
  Company Number: CO-EMD SERONO-9043708

PATIENT
  Sex: Female

DRUGS (2)
  1. SAIZEN [Suspect]
     Active Substance: SOMATROPIN
     Indication: BODY HEIGHT BELOW NORMAL
  2. SAIZEN [Suspect]
     Active Substance: SOMATROPIN
     Indication: NEPHROPATHY

REACTIONS (6)
  - Pyrexia [Unknown]
  - Infection [Unknown]
  - Off label use [Unknown]
  - Papilloedema [Unknown]
  - Malaise [Unknown]
  - Headache [Unknown]
